FAERS Safety Report 17902497 (Version 1)
Quarter: 2020Q2

REPORT INFORMATION
  Report Type: Spontaneous
  Country: CA (occurrence: CA)
  Receive Date: 20200616
  Receipt Date: 20200616
  Transmission Date: 20200714
  Serious: Yes (Other)
  Sender: FDA-Public Use
  Company Number: CA-BAXTER-2020BAX012120

PATIENT
  Age: 34 Year
  Sex: Female

DRUGS (5)
  1. PACLITAXEL. [Suspect]
     Active Substance: PACLITAXEL
     Indication: BORDERLINE SEROUS TUMOUR OF OVARY
     Route: 065
  2. PROCYTOX (CYCLOPHOSPHAMIDE) 2000MG/VIAL [Suspect]
     Active Substance: CYCLOPHOSPHAMIDE
     Indication: BORDERLINE SEROUS TUMOUR OF OVARY
     Route: 065
  3. DOXIL [Suspect]
     Active Substance: DOXORUBICIN HYDROCHLORIDE
     Indication: BORDERLINE SEROUS TUMOUR OF OVARY
     Route: 065
  4. CARBOPLATIN. [Suspect]
     Active Substance: CARBOPLATIN
     Indication: BORDERLINE SEROUS TUMOUR OF OVARY
     Route: 065
  5. CISPLATIN. [Suspect]
     Active Substance: CISPLATIN
     Indication: BORDERLINE SEROUS TUMOUR OF OVARY
     Route: 065

REACTIONS (4)
  - Bladder perforation [Recovered/Resolved]
  - Gastrointestinal toxicity [Recovered/Resolved]
  - Neoplasm progression [Recovered/Resolved]
  - Hydronephrosis [Recovered/Resolved]
